FAERS Safety Report 15658480 (Version 4)
Quarter: 2019Q2

REPORT INFORMATION
  Report Type: Spontaneous
  Country: US (occurrence: US)
  Receive Date: 20181126
  Receipt Date: 20190624
  Transmission Date: 20190711
  Serious: Yes (Hospitalization)
  Sender: FDA-Public Use
  Company Number: US-ACTELION-A-NJ2018-182538

PATIENT
  Age: 37 Year
  Sex: Female
  Weight: 54.42 kg

DRUGS (6)
  1. VELETRI [Suspect]
     Active Substance: EPOPROSTENOL
     Dosage: 94 NG/KG, PER MIN
     Route: 042
  2. VELETRI [Suspect]
     Active Substance: EPOPROSTENOL
     Indication: PULMONARY ARTERIAL HYPERTENSION
     Dosage: 105 NG/KG, PER MIN
     Route: 042
  3. VELETRI [Suspect]
     Active Substance: EPOPROSTENOL
     Dosage: 90 NG/KG, PER MIN
     Route: 042
  4. SILDENAFIL CITRATE. [Concomitant]
     Active Substance: SILDENAFIL CITRATE
  5. ADEMPAS [Concomitant]
     Active Substance: RIOCIGUAT
  6. OPSUMIT [Suspect]
     Active Substance: MACITENTAN
     Indication: PULMONARY ARTERIAL HYPERTENSION
     Dosage: 10 MG, QD
     Route: 048

REACTIONS (4)
  - Dyspnoea [Unknown]
  - Catheter site related reaction [Unknown]
  - Hospitalisation [Unknown]
  - Weight decreased [Unknown]

NARRATIVE: CASE EVENT DATE: 20181115
